FAERS Safety Report 18962997 (Version 1)
Quarter: 2021Q1

REPORT INFORMATION
  Report Type: Spontaneous
  Country: US (occurrence: US)
  Receive Date: 20210303
  Receipt Date: 20210303
  Transmission Date: 20210420
  Serious: No
  Sender: FDA-Public Use
  Company Number: US-TAKEDA-2021TUS013135

PATIENT
  Sex: Male
  Weight: 83 kg

DRUGS (18)
  1. HYQVIA [Suspect]
     Active Substance: HUMAN IMMUNOGLOBULIN G\HYALURONIDASE RECOMBINANT HUMAN
     Indication: IMMUNODEFICIENCY
     Dosage: 30 GRAM, Q4WEEKS
     Route: 058
     Dates: start: 20210114
  2. FISH OIL [Concomitant]
     Active Substance: FISH OIL
  3. DIPHENHYDRAMINE. [Concomitant]
     Active Substance: DIPHENHYDRAMINE
  4. XYZAL [Concomitant]
     Active Substance: LEVOCETIRIZINE DIHYDROCHLORIDE
  5. LOSARTAN POTASSIUM. [Concomitant]
     Active Substance: LOSARTAN POTASSIUM
  6. COENZYME Q10 [Concomitant]
     Active Substance: DIETARY SUPPLEMENT\UBIDECARENONE
  7. AZELASTINE. [Concomitant]
     Active Substance: AZELASTINE HYDROCHLORIDE
  8. ANASTROZOLE. [Concomitant]
     Active Substance: ANASTROZOLE
  9. LANSOPRAZOLE. [Concomitant]
     Active Substance: LANSOPRAZOLE
  10. DEPO?TESTOSTERONE [Concomitant]
     Active Substance: TESTOSTERONE CYPIONATE
  11. NORMAL SALINE [Concomitant]
     Active Substance: SODIUM CHLORIDE
  12. ROSUVASTATIN CALCIUM. [Concomitant]
     Active Substance: ROSUVASTATIN CALCIUM
  13. LIDOCAINE. [Concomitant]
     Active Substance: LIDOCAINE
  14. PREGNYL [Concomitant]
     Active Substance: CHORIOGONADOTROPIN ALFA
  15. ACETAMINOPHEN. [Concomitant]
     Active Substance: ACETAMINOPHEN
  16. EPINEPHRINE. [Concomitant]
     Active Substance: EPINEPHRINE
  17. VITAMIN D3 [Concomitant]
     Active Substance: CHOLECALCIFEROL
  18. MULTIVITAMINS [VITAMINS NOS] [Concomitant]
     Active Substance: VITAMINS

REACTIONS (2)
  - Diarrhoea [Unknown]
  - Prostatomegaly [Unknown]
